FAERS Safety Report 12552434 (Version 1)
Quarter: 2016Q3

REPORT INFORMATION
  Report Type: Spontaneous
  Country: US (occurrence: None)
  Receive Date: 20160712
  Receipt Date: 20160712
  Transmission Date: 20161109
  Serious: No
  Sender: FDA-Public Use
  Company Number: None

PATIENT
  Age: 65 Year
  Sex: Male

DRUGS (1)
  1. ZEPATIER [Suspect]
     Active Substance: ELBASVIR\GRAZOPREVIR
     Indication: CHRONIC HEPATITIS C
     Dosage: 50/100MG ONCE DAILY BY MOUTH
     Route: 048
     Dates: start: 20160606

REACTIONS (3)
  - Fatigue [None]
  - Skin discolouration [None]
  - Arthralgia [None]

NARRATIVE: CASE EVENT DATE: 20160606
